FAERS Safety Report 16806256 (Version 1)
Quarter: 2019Q3

REPORT INFORMATION
  Report Type: Spontaneous
  Country: CA (occurrence: CA)
  Receive Date: 20190913
  Receipt Date: 20190913
  Transmission Date: 20191005
  Serious: Yes (Hospitalization)
  Sender: FDA-Public Use
  Company Number: CA-009507513-1909CAN004073

PATIENT
  Sex: Male

DRUGS (1)
  1. COTAZYM [Suspect]
     Active Substance: PANCRELIPASE

REACTIONS (2)
  - Adverse event [Unknown]
  - Weight gain poor [Unknown]
